FAERS Safety Report 14207688 (Version 1)
Quarter: 2017Q4

REPORT INFORMATION
  Report Type: Spontaneous
  Country: US (occurrence: US)
  Receive Date: 20171121
  Receipt Date: 20171121
  Transmission Date: 20180321
  Serious: Yes (Other)
  Sender: FDA-Public Use
  Company Number: US-B.I. PHARMACEUTICALS,INC./RIDGEFIELD-2017-BI-061535

PATIENT
  Age: 67 Year
  Sex: Male

DRUGS (1)
  1. PRADAXA [Suspect]
     Active Substance: DABIGATRAN ETEXILATE MESYLATE
     Indication: ATRIAL FIBRILLATION
     Route: 065

REACTIONS (9)
  - Ulcerative gastritis [Unknown]
  - Intestinal ischaemia [Unknown]
  - Upper gastrointestinal haemorrhage [Unknown]
  - Gastric ulcer [Unknown]
  - Thrombosis [Unknown]
  - Mesenteric arterial occlusion [Unknown]
  - Arterial wall hypertrophy [Unknown]
  - Coronary ostial stenosis [Unknown]
  - Coeliac artery occlusion [Unknown]
